FAERS Safety Report 9222794 (Version 2)
Quarter: 2013Q3

REPORT INFORMATION
  Report Type: Spontaneous
  Country: US (occurrence: US)
  Receive Date: 20130410
  Receipt Date: 20130906
  Transmission Date: 20140515
  Serious: Yes (Hospitalization)
  Sender: FDA-Public Use
  Company Number: US-BAYER-2013-045106

PATIENT
  Age: 40 Year
  Sex: Female
  Weight: 108.84 kg

DRUGS (19)
  1. YASMIN [Suspect]
     Dosage: UNK
     Dates: start: 200208, end: 200302
  2. TOPAMAX [Concomitant]
     Indication: MIGRAINE PROPHYLAXIS
     Dosage: 25 MG, ONCE TO TWICE DAILY
     Dates: start: 2000
  3. ALLEGRA [Concomitant]
     Dosage: 180 MG, UNK
     Dates: start: 20021102
  4. BENZACLIN [Concomitant]
     Route: 061
  5. RHINOCORT [Concomitant]
     Route: 045
  6. FIORINAL [ACETYLSALICYLIC ACID,BUTALBITAL,CAFFEINE] [Concomitant]
     Indication: MIGRAINE
     Dosage: AS NEEDED FOR MIGRAINE
  7. PYRIDIUM [Concomitant]
     Indication: URINARY TRACT INFECTION
  8. LEVAQUIN [Concomitant]
     Indication: URINARY TRACT INFECTION
     Dosage: 500 MG, DAILY FOR 7 DAYS
  9. BEXTRA [Concomitant]
     Indication: URINARY TRACT INFLAMMATION
     Dosage: 10 MG, DAILY FOR THE NEXT FEW DAYS
  10. PHENAZOPYRIDINE [Concomitant]
     Dosage: 200 MG, UNK
  11. CLOBETASOL [Concomitant]
     Dosage: 0.05 %, UNK
  12. AMBIEN [Concomitant]
     Dosage: 10 MG, UNK
  13. PATANOL [Concomitant]
     Dosage: 0.1 %, UNK
     Route: 047
  14. CALCIUM [Concomitant]
  15. MEDROL [Concomitant]
     Dosage: AS NEEDED FOR MIGRAINE
  16. OXYCONTIN [Concomitant]
     Dosage: AS NEEDED FOR MIGRAINE
  17. MIGRANAL [Concomitant]
     Indication: MIGRAINE
     Dosage: AS NEEDED FOR MIGRAINE
     Route: 045
  18. NORTRIPTYLINE [Concomitant]
     Dosage: 50 MG, AT BEDTIME
  19. HYDROCHLOROTHIAZIDE [Concomitant]
     Dosage: 25 MG, TABLETS

REACTIONS (8)
  - Pulmonary embolism [Recovered/Resolved]
  - Deep vein thrombosis [None]
  - Pain [Recovered/Resolved]
  - Injury [Recovered/Resolved]
  - Anhedonia [None]
  - Anxiety [None]
  - Fear of disease [None]
  - Depression [None]
